FAERS Safety Report 5015246-1 (Version None)
Quarter: 2006Q2

REPORT INFORMATION
  Report Type: 
  Country: None (occurrence: None)
  Receive Date: 20060425
  Receipt Date: 20060119
  Transmission Date: 20061013
  Serious: No
  Sender: FDA-Public Use
  Company Number: 2006-BP-00650BP

PATIENT
  Age: 58 Year
  Sex: Male

DRUGS (5)
  1. APTIVUS/RITONAVIR CAPSULES [Suspect]
     Indication: HIV INFECTION
     Dosage: SEE TEXT (2 BID),PO
     Route: 048
     Dates: start: 20050701
  2. FUZEON [Concomitant]
  3. VIDEX [Concomitant]
  4. ZERIT [Concomitant]
  5. VIREND [Concomitant]

REACTIONS (1)
  - HEPATOTOXICITY [None]
